FAERS Safety Report 24141188 (Version 1)
Quarter: 2024Q3

REPORT INFORMATION
  Report Type: Spontaneous
  Country: CN (occurrence: CN)
  Receive Date: 20240726
  Receipt Date: 20240726
  Transmission Date: 20241017
  Serious: Yes (Other)
  Sender: CHEPLAPHARM
  Company Number: CN-CHEPLA-2024009405

PATIENT
  Age: 77 Year
  Sex: Male
  Weight: 74.4 kg

DRUGS (1)
  1. CAPECITABINE [Suspect]
     Active Substance: CAPECITABINE
     Indication: Rectal cancer
     Dosage: BID, APPROVAL NO. GYZZ H20073024 ?DAILY DOSE: 4 DOSAGE FORM
     Route: 048
     Dates: start: 20240702, end: 20240702

REACTIONS (3)
  - Laryngeal oedema [Recovering/Resolving]
  - Tachypnoea [Recovering/Resolving]
  - Chest discomfort [Recovering/Resolving]

NARRATIVE: CASE EVENT DATE: 20240702
